FAERS Safety Report 5343696-2 (Version None)
Quarter: 2007Q2

REPORT INFORMATION
  Report Type: 
  Country: None (occurrence: None)
  Receive Date: 20070604
  Receipt Date: 20070523
  Transmission Date: 20071010
  Serious: Yes (Hospitalization)
  Sender: FDA-Public Use
  Company Number: GB-JNJFOC-20070303785

PATIENT
  Age: 7 Year
  Sex: Female

DRUGS (4)
  1. IBUPROFEN [Suspect]
  2. IBUPROFEN [Suspect]
     Indication: DRUG USE FOR UNKNOWN INDICATION
     Dosage: 6 MG/KG
  3. ALBUMIN (HUMAN) [Concomitant]
  4. HYDROCORTISONE [Concomitant]
     Dosage: 1/TOTAL

REACTIONS (1)
  - HYPOTHERMIA [None]
